FAERS Safety Report 25134694 (Version 4)
Quarter: 2025Q3

REPORT INFORMATION
  Report Type: Spontaneous
  Country: US (occurrence: US)
  Receive Date: 20250328
  Receipt Date: 20250918
  Transmission Date: 20251020
  Serious: Yes (Other)
  Sender: TEVA
  Company Number: US-TEVA-VS-3312302

PATIENT
  Age: 90 Year
  Sex: Female

DRUGS (5)
  1. AJOVY [Suspect]
     Active Substance: FREMANEZUMAB-VFRM
     Indication: Migraine
     Dosage: 3-5 YEARS AGO
     Route: 065
  2. AJOVY [Suspect]
     Active Substance: FREMANEZUMAB-VFRM
  3. TYLENOL [Concomitant]
     Active Substance: ACETAMINOPHEN
     Indication: Myalgia
  4. VIMPAT [Concomitant]
     Active Substance: LACOSAMIDE
     Indication: Product used for unknown indication
  5. GEMTESA [Concomitant]
     Active Substance: VIBEGRON
     Indication: Product used for unknown indication

REACTIONS (14)
  - Fall [Unknown]
  - Squamous cell carcinoma of the vulva [Unknown]
  - Eye haemorrhage [Unknown]
  - Ocular hyperaemia [Unknown]
  - Headache [Unknown]
  - Eye pain [Unknown]
  - Ligament sprain [Unknown]
  - Product use issue [Unknown]
  - Product use issue [Unknown]
  - Insurance issue [Unknown]
  - Dislocation of vertebra [Unknown]
  - Brain fog [Unknown]
  - Asthenia [Unknown]
  - Neck injury [Unknown]

NARRATIVE: CASE EVENT DATE: 20220101
